FAERS Safety Report 8357460-3 (Version None)
Quarter: 2012Q2

REPORT INFORMATION
  Report Type: 
  Country: None (occurrence: None)
  Receive Date: 20120511
  Receipt Date: 20120426
  Transmission Date: 20120825
  Serious: Yes (Other)
  Sender: FDA-Public Use
  Company Number: US-1191927

PATIENT
  Age: 81 Year
  Sex: Female
  Weight: 93.8946 kg

DRUGS (5)
  1. BSS [Suspect]
     Indication: INTRAOCULAR LENS IMPLANT
     Dosage: (INTRAOCULAR)
     Route: 031
     Dates: start: 20120329, end: 20120329
  2. VIGAMOX [Suspect]
     Indication: INTRAOCULAR LENS IMPLANT
     Dosage: (FOUR TIMES A DAY OPHTHALMIC)
     Route: 047
     Dates: start: 20120327, end: 20120405
  3. LIDOCAINE [Concomitant]
  4. BETADINE [Suspect]
     Indication: INTRAOCULAR LENS IMPLANT
     Dosage: (OPHTHALMIC)
     Route: 047
     Dates: start: 20120329, end: 20120329
  5. PREDNISOLONE ACETATE [Suspect]
     Indication: INTRAOCULAR LENS IMPLANT
     Dosage: (FOUR TIMES A DAY OPHTHALMIC)
     Route: 047
     Dates: start: 20120327

REACTIONS (1)
  - TOXIC ANTERIOR SEGMENT SYNDROME [None]
